FAERS Safety Report 6692466-1 (Version None)
Quarter: 2010Q2

REPORT INFORMATION
  Report Type: 
  Country: None (occurrence: None)
  Receive Date: 20100422
  Receipt Date: 20100416
  Transmission Date: 20101027
  Serious: Yes (Death, Hospitalization)
  Sender: FDA-Public Use
  Company Number: A0844799A

PATIENT
  Age: 68 Year
  Sex: Female

DRUGS (2)
  1. ARIXTRA [Suspect]
     Indication: DRUG USE FOR UNKNOWN INDICATION
     Route: 065
  2. CHEMOTHERAPY [Suspect]
     Indication: NEOPLASM MALIGNANT

REACTIONS (4)
  - CARDIAC DISORDER [None]
  - HYPOTENSION [None]
  - SEPSIS [None]
  - THROMBOSIS [None]
